FAERS Safety Report 22123017 (Version 1)
Quarter: 2023Q1

REPORT INFORMATION
  Report Type: Spontaneous
  Country: AU (occurrence: None)
  Receive Date: 20230322
  Receipt Date: 20230322
  Transmission Date: 20230417
  Serious: Yes (Other)
  Sender: FDA-Public Use
  Company Number: 2023A062659

PATIENT
  Age: 66 Year
  Sex: Female

DRUGS (12)
  1. FASLODEX [Suspect]
     Active Substance: FULVESTRANT
  2. TAMOXIFEN [Suspect]
     Active Substance: TAMOXIFEN
  3. PALBOCICLIB [Suspect]
     Active Substance: PALBOCICLIB
  4. ABRAXANE [Suspect]
     Active Substance: PACLITAXEL
  5. AFINITOR [Suspect]
     Active Substance: EVEROLIMUS
  6. AROMASIN [Suspect]
     Active Substance: EXEMESTANE
  7. DOXORUBICIN HYDROCHLORIDE [Suspect]
     Active Substance: DOXORUBICIN HYDROCHLORIDE
  8. CYCLOPHOSPHAMIDE [Suspect]
     Active Substance: CYCLOPHOSPHAMIDE
  9. LETROZOLE [Suspect]
     Active Substance: LETROZOLE
  10. METHOTREXATE [Suspect]
     Active Substance: METHOTREXATE
  11. FLUOROURACIL [Suspect]
     Active Substance: FLUOROURACIL
  12. XELODA [Suspect]
     Active Substance: CAPECITABINE

REACTIONS (5)
  - Metastases to pelvis [Unknown]
  - Bone disorder [Unknown]
  - Cytogenetic analysis abnormal [Unknown]
  - Hepatic lesion [Unknown]
  - Pulmonary mass [Unknown]
